FAERS Safety Report 6131831-8 (Version None)
Quarter: 2009Q1

REPORT INFORMATION
  Report Type: 
  Country: None (occurrence: None)
  Receive Date: 20090323
  Receipt Date: 20090306
  Transmission Date: 20090719
  Serious: Yes (Hospitalization)
  Sender: FDA-Public Use
  Company Number: 2009AL001473

PATIENT
  Age: 62 Year
  Sex: Male

DRUGS (1)
  1. MELOXICAM [Suspect]
     Indication: OSTEOARTHRITIS
     Dosage: QD; PO
     Route: 048

REACTIONS (1)
  - CHOLECYSTITIS ACUTE [None]
